FAERS Safety Report 19783466 (Version 3)
Quarter: 2021Q4

REPORT INFORMATION
  Report Type: Spontaneous
  Country: JP (occurrence: JP)
  Receive Date: 20210902
  Receipt Date: 20211114
  Transmission Date: 20220304
  Serious: Yes (Other)
  Sender: FDA-Public Use
  Company Number: JP-SAKK-2021SA287151AA

PATIENT
  Age: 77 Year
  Sex: Male

DRUGS (4)
  1. DUPIXENT [Suspect]
     Active Substance: DUPILUMAB
     Indication: Dermatitis atopic
     Dosage: 300 MG, QOW
     Route: 058
     Dates: start: 20200615, end: 20210809
  2. DUPIXENT [Suspect]
     Active Substance: DUPILUMAB
     Dosage: 600 MG, 1X
     Route: 058
     Dates: start: 20200601, end: 20200601
  3. BEPOTASTINE BESYLATE [Concomitant]
     Active Substance: BEPOTASTINE BESYLATE
     Indication: Pruritus
     Dosage: 10 MG, BID
     Route: 048
     Dates: start: 20160105, end: 20210818
  4. BETAMETHASONE DIPROPIONATE [Concomitant]
     Active Substance: BETAMETHASONE DIPROPIONATE
     Indication: Dermatitis atopic
     Dosage: 6 G, QD
     Route: 061
     Dates: start: 20160105

REACTIONS (3)
  - Cutaneous lymphoma [Recovering/Resolving]
  - Dermatitis atopic [Unknown]
  - Therapeutic response decreased [Unknown]

NARRATIVE: CASE EVENT DATE: 20210701
